FAERS Safety Report 9668007 (Version 1)
Quarter: 2013Q4

REPORT INFORMATION
  Report Type: Spontaneous
  Country: GB (occurrence: GB)
  Receive Date: 20131104
  Receipt Date: 20131104
  Transmission Date: 20140711
  Serious: Yes (Hospitalization)
  Sender: FDA-Public Use
  Company Number: GB-GLAXOSMITHKLINE-B0936990A

PATIENT
  Age: 38 Year
  Sex: Female
  Weight: 60 kg

DRUGS (2)
  1. MALARONE [Suspect]
     Indication: MALARIA PROPHYLAXIS
     Route: 048
     Dates: start: 201307, end: 20130828
  2. MULTIVITAMIN [Concomitant]

REACTIONS (3)
  - Skin exfoliation [Recovered/Resolved]
  - Arrhythmia [Recovered/Resolved]
  - Tachycardia [Recovered/Resolved]
